FAERS Safety Report 7260831-X (Version None)
Quarter: 2011Q1

REPORT INFORMATION
  Report Type: 
  Country: None (occurrence: None)
  Receive Date: 20110130
  Receipt Date: 20101112
  Transmission Date: 20110831
  Serious: No
  Sender: FDA-Public Use
  Company Number: US-ABBOTT-10P-163-0685076-00

PATIENT
  Sex: Male
  Weight: 61.29 kg

DRUGS (6)
  1. OMEPRAZOLE [Concomitant]
     Indication: CROHN'S DISEASE
     Route: 048
  2. METHOTREXATE [Concomitant]
     Indication: CROHN'S DISEASE
     Route: 048
  3. MULTI-VITAMIN [Concomitant]
     Indication: VITAMIN SUPPLEMENTATION
     Route: 048
  4. HUMIRA [Suspect]
     Indication: CROHN'S DISEASE
     Route: 058
     Dates: start: 20100601, end: 20101001
  5. FOLIC ACID [Concomitant]
     Indication: VITAMIN SUPPLEMENTATION
     Route: 048
  6. HUMIRA [Suspect]
     Route: 058
     Dates: start: 20101001

REACTIONS (4)
  - INJECTION SITE PAIN [None]
  - DRUG EFFECT DECREASED [None]
  - SKIN MASS [None]
  - DEVICE MALFUNCTION [None]
